FAERS Safety Report 4469172-7 (Version None)
Quarter: 2004Q4

REPORT INFORMATION
  Report Type: 
  Country: None (occurrence: None)
  Receive Date: 20041005
  Receipt Date: 20040922
  Transmission Date: 20050328
  Serious: Yes (Hospitalization)
  Sender: FDA-Public Use
  Company Number: 175806

PATIENT
  Age: 55 Year
  Sex: Female
  Weight: 103.4201 kg

DRUGS (1)
  1. AVONEX [Suspect]
     Indication: MULTIPLE SCLEROSIS
     Dosage: 30 MCG QW IM
     Route: 030
     Dates: start: 19960101

REACTIONS (16)
  - BLOOD POTASSIUM DECREASED [None]
  - BLOOD PRESSURE INCREASED [None]
  - BRONCHITIS [None]
  - CELLULITIS [None]
  - DYSARTHRIA [None]
  - DYSGRAPHIA [None]
  - DYSPHAGIA [None]
  - FEELING HOT [None]
  - HYPERHIDROSIS [None]
  - INJECTION SITE EXTRAVASATION [None]
  - INTENTION TREMOR [None]
  - MULTIPLE SCLEROSIS [None]
  - NAUSEA [None]
  - OEDEMA PERIPHERAL [None]
  - STRESS SYMPTOMS [None]
  - VISION BLURRED [None]
